FAERS Safety Report 13705653 (Version 1)
Quarter: 2017Q2

REPORT INFORMATION
  Report Type: Spontaneous
  Country: FR (occurrence: FR)
  Receive Date: 20170630
  Receipt Date: 20170630
  Transmission Date: 20170830
  Serious: Yes (Death, Hospitalization)
  Sender: FDA-Public Use
  Company Number: FR-ACTELION-A-CH2016-146084

PATIENT
  Age: 67 Year
  Sex: Female

DRUGS (7)
  1. VELETRI [Suspect]
     Active Substance: EPOPROSTENOL
     Indication: PULMONARY ARTERIAL HYPERTENSION
     Dosage: UNK
     Route: 042
     Dates: start: 20161109
  2. TRIATEC [Concomitant]
     Active Substance: RAMIPRIL
  3. EUPANTOL [Concomitant]
     Active Substance: PANTOPRAZOLE SODIUM
  4. REVATIO [Concomitant]
     Active Substance: SILDENAFIL CITRATE
  5. TRACLEER [Concomitant]
     Active Substance: BOSENTAN
  6. CRESTOR [Concomitant]
     Active Substance: ROSUVASTATIN CALCIUM
  7. LASILIX [Concomitant]
     Active Substance: FUROSEMIDE

REACTIONS (7)
  - Sepsis [Unknown]
  - Skin warm [Unknown]
  - Purulent discharge [Unknown]
  - Sudden death [Fatal]
  - Erythema [Unknown]
  - Device related infection [Unknown]
  - Abscess [Unknown]

NARRATIVE: CASE EVENT DATE: 20161115
